FAERS Safety Report 18477284 (Version 1)
Quarter: 2020Q4

REPORT INFORMATION
  Report Type: Spontaneous
  Country: GB (occurrence: GB)
  Receive Date: 20201107
  Receipt Date: 20201107
  Transmission Date: 20210114
  Serious: Yes (Other)
  Sender: FDA-Public Use
  Company Number: GB-TEVA-2020-GB-1845127

PATIENT
  Age: 53 Year
  Sex: Female
  Weight: 70 kg

DRUGS (6)
  1. LOSARTAN. [Concomitant]
     Active Substance: LOSARTAN
     Dosage: CURRENTLY ON HOLD
  2. NIFEDIPINE. [Concomitant]
     Active Substance: NIFEDIPINE
     Dosage: 20MG
  3. SILDENAFIL. [Suspect]
     Active Substance: SILDENAFIL
     Indication: RAYNAUD^S PHENOMENON
     Dosage: UNIT DOSE 75MG
     Route: 048
     Dates: start: 20200831, end: 20201007
  4. FOLIC ACID. [Concomitant]
     Active Substance: FOLIC ACID
     Dosage: 15MG
  5. METOJECT [Concomitant]
     Active Substance: METHOTREXATE SODIUM
     Dosage: 12.5MG
  6. HYDROXYCHLOROQUINE SULFATE. [Concomitant]
     Active Substance: HYDROXYCHLOROQUINE SULFATE
     Dosage: 400MG

REACTIONS (3)
  - Hypertension [Not Recovered/Not Resolved]
  - Balance disorder [Unknown]
  - Vertigo [Unknown]

NARRATIVE: CASE EVENT DATE: 20201007
